FAERS Safety Report 4771146-3 (Version None)
Quarter: 2005Q3

REPORT INFORMATION
  Report Type: 
  Country: None (occurrence: None)
  Receive Date: 20050912
  Receipt Date: 20050616
  Transmission Date: 20060218
  Serious: No
  Sender: FDA-Public Use
  Company Number: 2005-01209

PATIENT
  Age: 65 Year
  Sex: Male
  Weight: 109.8 kg

DRUGS (8)
  1. VELCADE [Suspect]
     Indication: MULTIPLE MYELOMA
     Dosage: 1.30 MG/M2, SUBCUTANEOUS
     Route: 058
     Dates: start: 20050425
  2. SODIUM CHLORIDE [Concomitant]
  3. ZOFRAN [Concomitant]
  4. DECADRON [Concomitant]
  5. BENADRYL (SODIUM CITRATE, MENTHOL, DIPHENHYDRAMINE HYDROCHLORIDE, AMMO [Concomitant]
  6. HEPARIN [Concomitant]
  7. AREDIA [Concomitant]
  8. PROCRIT [Concomitant]

REACTIONS (3)
  - ARTHRALGIA [None]
  - BACK PAIN [None]
  - PLATELET COUNT DECREASED [None]
